FAERS Safety Report 15594158 (Version 2)
Quarter: 2018Q4

REPORT INFORMATION
  Report Type: Report from Study
  Country: AR (occurrence: AR)
  Receive Date: 20181107
  Receipt Date: 20181108
  Transmission Date: 20190205
  Serious: Yes (Other)
  Sender: FDA-Public Use
  Company Number: PHHY2018AR148528

PATIENT
  Sex: Male

DRUGS (3)
  1. LERCANIDIPINE [Concomitant]
     Active Substance: LERCANIDIPINE
     Indication: PRODUCT USED FOR UNKNOWN INDICATION
     Route: 065
  2. EXFORGE [Suspect]
     Active Substance: AMLODIPINE BESYLATE\VALSARTAN
     Indication: BLOOD PRESSURE INCREASED
     Dosage: 1 DF, QD ( AMLODIPINE 10MG, VALSARTAN 320MG)
     Route: 065
     Dates: start: 2007
  3. VALSARTAN. [Suspect]
     Active Substance: VALSARTAN
     Indication: PRODUCT USED FOR UNKNOWN INDICATION
     Route: 065

REACTIONS (4)
  - Dizziness [Unknown]
  - Joint swelling [Unknown]
  - Blood pressure increased [Unknown]
  - Memory impairment [Unknown]
